FAERS Safety Report 17196608 (Version 1)
Quarter: 2019Q4

REPORT INFORMATION
  Report Type: Spontaneous
  Country: US (occurrence: US)
  Receive Date: 20191203
  Receipt Date: 20191203
  Transmission Date: 20200122
  Serious: Yes (Death)
  Sender: FDA-Public Use
  Company Number: None

PATIENT
  Age: 20 Year
  Sex: Male

DRUGS (10)
  1. DRONABINOL. [Concomitant]
     Active Substance: DRONABINOL
  2. GLYCERIN. [Concomitant]
     Active Substance: GLYCERIN
  3. STOOL SOFTNER [Concomitant]
  4. LORTATDINE [Concomitant]
  5. IRINOTECAN 20MG/ML 5 ML VIAL WEST-WARD [Suspect]
     Active Substance: IRINOTECAN
  6. IRINOTECAN 20MG/ML 5 ML VIAL WEST-WARD [Suspect]
     Active Substance: IRINOTECAN
     Indication: NEOPLASM MALIGNANT
     Dosage: ?          OTHER DOSE:4.5ML (90MG);OTHER FREQUENCY:QD X 5 DAYS;?
     Route: 048
     Dates: start: 20190825, end: 20191126
  7. GABAPENTIN. [Concomitant]
     Active Substance: GABAPENTIN
  8. OXYCONTIN [Concomitant]
     Active Substance: OXYCODONE HYDROCHLORIDE
  9. MORPHINE [Concomitant]
     Active Substance: MORPHINE
  10. SERTRAINE [Concomitant]

REACTIONS (1)
  - Death [None]
